FAERS Safety Report 15893036 (Version 3)
Quarter: 2019Q1

REPORT INFORMATION
  Report Type: Report from Study
  Country: None (occurrence: ES)
  Receive Date: 20190130
  Receipt Date: 20190228
  Transmission Date: 20190417
  Serious: Yes (Life-Threatening, Hospitalization, Other)
  Sender: FDA-Public Use
  Company Number: ES-ABBVIE-19S-144-2638426-00

PATIENT
  Age: 67 Year
  Sex: Male
  Weight: 80 kg

DRUGS (1)
  1. DUODOPA [Suspect]
     Active Substance: CARBIDOPA\LEVODOPA
     Indication: PARKINSON^S DISEASE
     Route: 050
     Dates: start: 20171116

REACTIONS (18)
  - Hernia repair [Recovered/Resolved]
  - Bradykinesia [Recovered/Resolved]
  - Sepsis [Recovered/Resolved with Sequelae]
  - Muscular weakness [Unknown]
  - Renal disorder [Unknown]
  - Pain in extremity [Unknown]
  - Pericardial disease [Not Recovered/Not Resolved]
  - Arrhythmia [Unknown]
  - Peripheral swelling [Unknown]
  - Freezing phenomenon [Recovered/Resolved]
  - Akinesia [Recovered/Resolved]
  - Muscle atrophy [Unknown]
  - Intra-abdominal fluid collection [Recovered/Resolved]
  - Pain [Not Recovered/Not Resolved]
  - Oliguria [Unknown]
  - Intra-abdominal haematoma [Recovered/Resolved]
  - Renal injury [Not Recovered/Not Resolved]
  - Nosocomial infection [Unknown]

NARRATIVE: CASE EVENT DATE: 201901
